FAERS Safety Report 7442537-7 (Version None)
Quarter: 2011Q2

REPORT INFORMATION
  Report Type: 
  Country: None (occurrence: None)
  Receive Date: 20110425
  Receipt Date: 20110425
  Transmission Date: 20111010
  Serious: No
  Sender: FDA-Public Use
  Company Number: None

PATIENT
  Sex: Female

DRUGS (3)
  1. LISINOPRIL [Concomitant]
  2. METFORMIN [Concomitant]
  3. MIOCHOL-E [Suspect]
     Indication: SURGERY
     Dosage: 1 VIAL -20 MG/2 ML- ONE TIME INTRAOCULAR
     Route: 031
     Dates: start: 20101027, end: 20101027

REACTIONS (3)
  - FOREIGN BODY IN EYE [None]
  - PRODUCT QUALITY ISSUE [None]
  - CORNEAL DEPOSITS [None]
